FAERS Safety Report 4312316-8 (Version None)
Quarter: 2004Q1

REPORT INFORMATION
  Report Type: 
  Country: None (occurrence: None)
  Receive Date: 20040305
  Receipt Date: 20040224
  Transmission Date: 20041129
  Serious: Yes (Other)
  Sender: FDA-Public Use
  Company Number: GB-GLAXOSMITHKLINE-B0324564A

PATIENT
  Age: 35 Year
  Sex: Male
  Weight: 69.85 kg

DRUGS (5)
  1. COMBIVIR [Suspect]
     Route: 048
  2. NELFINAVIR [Suspect]
     Dosage: 1250MG TWICE PER DAY
     Route: 048
  3. HEPATITIS B VACCINE [Concomitant]
     Route: 030
  4. DOXYCYCLINE [Concomitant]
     Dosage: 100MG TWICE PER DAY
     Route: 048
  5. PARACETAMOL [Concomitant]
     Route: 065

REACTIONS (7)
  - ABDOMINAL DISTENSION [None]
  - AGGRESSION [None]
  - DIARRHOEA [None]
  - FATIGUE [None]
  - FLATULENCE [None]
  - IRRITABILITY [None]
  - NAUSEA [None]
